FAERS Safety Report 24754672 (Version 1)
Quarter: 2024Q4

REPORT INFORMATION
  Report Type: Spontaneous
  Country: CN (occurrence: CN)
  Receive Date: 20241219
  Receipt Date: 20241219
  Transmission Date: 20250115
  Serious: Yes (Hospitalization, Other)
  Sender: BAXTER
  Company Number: None

PATIENT
  Age: 15 Year
  Sex: Female
  Weight: 41.2 kg

DRUGS (6)
  1. CYCLOPHOSPHAMIDE [Suspect]
     Active Substance: CYCLOPHOSPHAMIDE
     Indication: Acute lymphocytic leukaemia
     Dosage: 1.4 G, ONE TIME IN ONE DAY, DILUTED WITH 250 ML OF GLUCOSE AND SODIUM CHLORIDE (4:1)
     Route: 041
     Dates: start: 20240916, end: 20240916
  2. SODIUM CHLORIDE [Suspect]
     Active Substance: SODIUM CHLORIDE
     Indication: Medication dilution
     Dosage: 250 ML SODIUM CHLORIDE AND GLUCOSE (1:4), ONE TIME IN ONE DAY, USED TO DILUTE 1.4 G OF CYCLOPHOSPHAM
     Route: 041
     Dates: start: 20240916, end: 20240916
  3. SODIUM CHLORIDE [Suspect]
     Active Substance: SODIUM CHLORIDE
     Dosage: 100 ML SODIUM CHLORIDE AND GLUCOSE (1:4), TWO TIMES IN ONE DAY (Q12H), USED TO DILUTE 1.4 G OF CYTAR
     Route: 041
     Dates: start: 20240916, end: 20240919
  4. DEXTROSE [Suspect]
     Active Substance: DEXTROSE MONOHYDRATE
     Indication: Medication dilution
     Dosage: 250 ML GLUCOSE AND SODIUM CHLORIDE (4:1), ONE TIME IN ONE DAY, USED TO DILUTE 1.4 G OF CYCLOPHOSPHAM
     Route: 041
     Dates: start: 20240916, end: 20240916
  5. DEXTROSE [Suspect]
     Active Substance: DEXTROSE MONOHYDRATE
     Dosage: 100 ML GLUCOSE AND SODIUM CHLORIDE (4:1), TWO TIMES IN ONE DAY (Q12H), USED TO DILUTE 1.4 G OF CYTAR
     Route: 041
     Dates: start: 20240916, end: 20240919
  6. CYTARABINE [Suspect]
     Active Substance: CYTARABINE
     Indication: Acute lymphocytic leukaemia
     Dosage: 1.4 G, TWO TIMES IN ONE DAY (Q12H), DILUTED WITH 100 ML OF GLUCOSE AND SODIUM CHLORIDE (4:1)
     Route: 041
     Dates: start: 20240916, end: 20240919

REACTIONS (1)
  - Myelosuppression [Recovering/Resolving]

NARRATIVE: CASE EVENT DATE: 20240928
